FAERS Safety Report 20220551 (Version 2)
Quarter: 2022Q1

REPORT INFORMATION
  Report Type: Report from Study
  Country: CA (occurrence: CA)
  Receive Date: 20211223
  Receipt Date: 20220130
  Transmission Date: 20220423
  Serious: Yes (Other)
  Sender: FDA-Public Use
  Company Number: CA-ABBVIE-21K-028-4207241-00

PATIENT
  Sex: Male

DRUGS (2)
  1. CARBIDOPA\LEVODOPA [Suspect]
     Active Substance: CARBIDOPA\LEVODOPA
     Indication: Parkinson^s disease
     Dosage: 20MG/ML, CARBIDOPAMONOHYDRATE 5MG/ML
     Route: 050
     Dates: start: 20140422
  2. CARBIDOPA\LEVODOPA [Suspect]
     Active Substance: CARBIDOPA\LEVODOPA
     Route: 050

REACTIONS (3)
  - Lymphoma [Unknown]
  - On and off phenomenon [Not Recovered/Not Resolved]
  - Poor quality sleep [Not Recovered/Not Resolved]
